FAERS Safety Report 15434586 (Version 1)
Quarter: 2018Q3

REPORT INFORMATION
  Report Type: Report from Study
  Country: US (occurrence: US)
  Receive Date: 20180927
  Receipt Date: 20180927
  Transmission Date: 20181010
  Serious: Yes (Hospitalization)
  Sender: FDA-Public Use
  Company Number: US-BAYER-2018-178495

PATIENT
  Age: 58 Year
  Sex: Female

DRUGS (3)
  1. ADEMPAS [Suspect]
     Active Substance: RIOCIGUAT
     Indication: PULMONARY ARTERIAL HYPERTENSION
     Dosage: 2.5 MG, BID
     Route: 048
     Dates: start: 20180420
  2. VELETRI [Suspect]
     Active Substance: EPOPROSTENOL
     Dosage: UNK
  3. ADEMPAS [Suspect]
     Active Substance: RIOCIGUAT
     Indication: PULMONARY ARTERIAL HYPERTENSION
     Dosage: UNK

REACTIONS (6)
  - Feeling abnormal [None]
  - Aspiration pleural cavity [None]
  - Inappropriate schedule of drug administration [None]
  - Vaginal haemorrhage [None]
  - Fatigue [None]
  - Mental status changes [None]

NARRATIVE: CASE EVENT DATE: 201808
